FAERS Safety Report 6398760-6 (Version None)
Quarter: 2009Q4

REPORT INFORMATION
  Report Type: 
  Country: None (occurrence: None)
  Receive Date: 20091013
  Receipt Date: 20091007
  Transmission Date: 20100525
  Serious: No
  Sender: FDA-Public Use
  Company Number: US-B.I. PHARMACEUTICALS,INC./RIDGEFIELD-2009-BP-11699BP

PATIENT
  Sex: Male

DRUGS (3)
  1. ZANTAC 150 [Suspect]
     Indication: CROHN'S DISEASE
     Dosage: 300 MG
     Route: 048
     Dates: start: 19920101
  2. ACIDAL [Concomitant]
     Indication: CROHN'S DISEASE
  3. REMERON [Concomitant]
     Dates: start: 20080101

REACTIONS (1)
  - AMPHETAMINES POSITIVE [None]
